FAERS Safety Report 7906116-7 (Version None)
Quarter: 2011Q4

REPORT INFORMATION
  Report Type: 
  Country: None (occurrence: None)
  Receive Date: 20111108
  Receipt Date: 20111025
  Transmission Date: 20120403
  Serious: Yes (Other)
  Sender: FDA-Public Use
  Company Number: TPA2011A07060

PATIENT
  Age: 8 Decade
  Sex: Female

DRUGS (4)
  1. ATENOLOL [Concomitant]
  2. ACTOS [Suspect]
     Indication: TYPE 2 DIABETES MELLITUS
     Dosage: 45 MG
     Dates: end: 20111001
  3. LANTUS [Concomitant]
  4. UNKNOWN MEDICATION FOR HIGH CHOLESTEROL (CHOLESTEROL-AND TRIGLYCERIDE [Concomitant]

REACTIONS (1)
  - BLADDER CANCER [None]
